FAERS Safety Report 16250751 (Version 1)
Quarter: 2019Q2

REPORT INFORMATION
  Report Type: Spontaneous
  Country: US (occurrence: US)
  Receive Date: 20190429
  Receipt Date: 20190429
  Transmission Date: 20190711
  Serious: No
  Sender: FDA-Public Use
  Company Number: US-INCYTE CORPORATION-2019IN003825

PATIENT

DRUGS (1)
  1. JAKAFI [Suspect]
     Active Substance: RUXOLITINIB
     Indication: PANCYTOPENIA
     Dosage: 5 MILLIGRAM, BID
     Route: 048
     Dates: start: 20190322

REACTIONS (2)
  - Off label use [Unknown]
  - Platelet count decreased [Unknown]
